FAERS Safety Report 15994960 (Version 1)
Quarter: 2019Q1

REPORT INFORMATION
  Report Type: Spontaneous
  Country: US (occurrence: US)
  Receive Date: 20190221
  Receipt Date: 20190221
  Transmission Date: 20190418
  Serious: Yes (Life-Threatening, Hospitalization)
  Sender: FDA-Public Use
  Company Number: None

PATIENT
  Age: 11 Year
  Sex: Female
  Weight: 25 kg

DRUGS (1)
  1. WARTPEEL- 5-FU (5-FLOURURACIL), 2% SALICYLIC ACID, AND 17% DMSO [Suspect]
     Active Substance: DIMETHYL SULFOXIDE\FLUOROURACIL\SALICYLIC ACID
     Indication: SKIN PAPILLOMA
     Route: 061
     Dates: start: 20180730, end: 20190208

REACTIONS (1)
  - Product use complaint [None]

NARRATIVE: CASE EVENT DATE: 20190208
